FAERS Safety Report 10070233 (Version 2)
Quarter: 2014Q2

REPORT INFORMATION
  Report Type: Spontaneous
  Country: US (occurrence: US)
  Receive Date: 20140410
  Receipt Date: 20140509
  Transmission Date: 20141212
  Serious: Yes (Hospitalization, Other)
  Sender: FDA-Public Use
  Company Number: US-ROCHE-1378781

PATIENT
  Age: 59 Year
  Sex: Female
  Weight: 64.01 kg

DRUGS (12)
  1. PEGASYS [Suspect]
     Indication: HEPATITIS C
     Route: 058
     Dates: start: 20140226, end: 20140314
  2. RIBAPAK [Suspect]
     Indication: HEPATITIS C
     Dosage: 1000 MG/DAY, 600MG/400MG  QAM/QPM
     Route: 048
     Dates: start: 20140226, end: 201403
  3. RIBAPAK [Suspect]
     Route: 048
     Dates: start: 20140228, end: 20140314
  4. SOVALDI [Suspect]
     Indication: HEPATITIS C
     Route: 048
     Dates: start: 20140226, end: 20140314
  5. METFORMIN HYDROCHLORIDE [Concomitant]
     Route: 048
  6. SPIRONOLACTONE [Concomitant]
     Route: 048
  7. ZINC SULPHATE [Concomitant]
     Route: 048
  8. FUROSEMIDE [Concomitant]
     Route: 048
     Dates: start: 20121126
  9. HYDROXYZINE PAMOATE [Concomitant]
     Route: 048
     Dates: start: 20111130
  10. PANTOPRAZOLE SODIUM [Concomitant]
     Route: 048
  11. XIFAXAN [Concomitant]
     Route: 048
  12. ALLOPURINOL [Concomitant]
     Route: 048

REACTIONS (5)
  - Anaemia [Recovering/Resolving]
  - Leukopenia [Recovering/Resolving]
  - Hepatic cirrhosis [Recovering/Resolving]
  - Fatigue [Recovering/Resolving]
  - Decreased appetite [Unknown]
